FAERS Safety Report 22203428 (Version 1)
Quarter: 2023Q2

REPORT INFORMATION
  Report Type: Spontaneous
  Country: FR (occurrence: FR)
  Receive Date: 20230412
  Receipt Date: 20230412
  Transmission Date: 20230721
  Serious: Yes (Other)
  Sender: FDA-Public Use
  Company Number: None

PATIENT
  Age: 74 Year
  Sex: Male
  Weight: 59 kg

DRUGS (3)
  1. IMODIUM [Suspect]
     Active Substance: LOPERAMIDE HYDROCHLORIDE
     Indication: Product used for unknown indication
     Route: 048
     Dates: start: 20190430
  2. STIVARGA [Suspect]
     Active Substance: REGORAFENIB
     Indication: Adenocarcinoma of colon
     Route: 048
     Dates: start: 20190430, end: 20190515
  3. PRIMPERAN [Suspect]
     Active Substance: METOCLOPRAMIDE HYDROCHLORIDE
     Indication: Prophylaxis
     Route: 048
     Dates: start: 20190430

REACTIONS (2)
  - Palmar-plantar erythrodysaesthesia syndrome [Not Recovered/Not Resolved]
  - Rash [Not Recovered/Not Resolved]

NARRATIVE: CASE EVENT DATE: 20190517
